FAERS Safety Report 6110105-5 (Version None)
Quarter: 2009Q1

REPORT INFORMATION
  Report Type: 
  Country: None (occurrence: None)
  Receive Date: 20090309
  Receipt Date: 20090309
  Transmission Date: 20090719
  Serious: Yes (Life-Threatening, Other)
  Sender: FDA-Public Use
  Company Number: None

PATIENT
  Sex: Female
  Weight: 63.5036 kg

DRUGS (1)
  1. SAM-E 200MG FINEST -WALGREEN- [Suspect]
     Indication: AFFECTIVE DISORDER
     Dates: start: 20090301, end: 20090307

REACTIONS (2)
  - CRYING [None]
  - PRODUCT QUALITY ISSUE [None]
